FAERS Safety Report 9191086 (Version 1)
Quarter: 2013Q1

REPORT INFORMATION
  Report Type: Spontaneous
  Country: BR (occurrence: BR)
  Receive Date: 20130326
  Receipt Date: 20130326
  Transmission Date: 20140127
  Serious: Yes (Hospitalization, Other)
  Sender: FDA-Public Use
  Company Number: PHHY2013BR029413

PATIENT
  Sex: Female

DRUGS (1)
  1. DIOVAN AMLO FIX [Suspect]
     Indication: HYPERTENSION
     Dosage: 160/5MG, QD

REACTIONS (5)
  - Renal failure [Unknown]
  - Blood triglycerides increased [Unknown]
  - Vomiting [Unknown]
  - Asthenia [Unknown]
  - Hypertension [Unknown]
